FAERS Safety Report 5463859-5 (Version None)
Quarter: 2007Q3

REPORT INFORMATION
  Report Type: 
  Country: None (occurrence: None)
  Receive Date: 20070816
  Receipt Date: 20061214
  Transmission Date: 20080115
  Serious: Yes (Other)
  Sender: FDA-Public Use
  Company Number: WAES 0612USA03298

PATIENT
  Age: 53 Year
  Sex: Male

DRUGS (1)
  1. INDOCIN [Suspect]
     Dosage: PO
     Route: 048
     Dates: start: 19880101, end: 20000301

REACTIONS (1)
  - GASTROINTESTINAL HAEMORRHAGE [None]
